FAERS Safety Report 14593554 (Version 4)
Quarter: 2018Q1

REPORT INFORMATION
  Report Type: Spontaneous
  Country: US (occurrence: US)
  Receive Date: 20180302
  Receipt Date: 20180312
  Transmission Date: 20180509
  Serious: Yes (Hospitalization)
  Sender: FDA-Public Use
  Company Number: US-PFIZER INC-2018081524

PATIENT
  Age: 73 Year
  Sex: Female
  Weight: 71.65 kg

DRUGS (3)
  1. LETROZOLE. [Concomitant]
     Active Substance: LETROZOLE
     Indication: NEOPLASM MALIGNANT
     Dosage: 2.5 MG, 1X/DAY
     Route: 048
  2. IBRANCE [Suspect]
     Active Substance: PALBOCICLIB
     Dosage: 100 MG, CYCLIC (DAILY, 21 DAYS ON; 7 DAYS OFF)
     Route: 048
     Dates: start: 201706, end: 201802
  3. IBRANCE [Suspect]
     Active Substance: PALBOCICLIB
     Indication: INVASIVE LOBULAR BREAST CARCINOMA
     Dosage: 125 MG, ONCE DAILY
     Route: 048
     Dates: start: 2015

REACTIONS (10)
  - Haemorrhoids [Recovered/Resolved]
  - White blood cell count decreased [Unknown]
  - Fluid retention [Recovered/Resolved]
  - Nausea [Unknown]
  - Stress [Unknown]
  - Weight increased [Recovered/Resolved]
  - Pleural effusion [Unknown]
  - Cardiac failure [Unknown]
  - Dyspnoea [Unknown]
  - Neoplasm progression [Not Recovered/Not Resolved]

NARRATIVE: CASE EVENT DATE: 201802
